FAERS Safety Report 15527039 (Version 2)
Quarter: 2018Q4

REPORT INFORMATION
  Report Type: Report from Study
  Country: None (occurrence: BR)
  Receive Date: 20181020
  Receipt Date: 20181025
  Transmission Date: 20190205
  Serious: Yes (Hospitalization, Other)
  Sender: FDA-Public Use
  Company Number: BR-ABBVIE-17K-020-2192926-00

PATIENT
  Age: 69 Year
  Sex: Female
  Weight: 51 kg

DRUGS (9)
  1. VITAMIN D [Concomitant]
     Active Substance: CHOLECALCIFEROL
     Indication: BONE DISORDER
  2. HYDROCHLOROTHIAZIDE. [Concomitant]
     Active Substance: HYDROCHLOROTHIAZIDE
     Indication: HYPERTENSION
  3. PARACETAMOL [Concomitant]
     Active Substance: ACETAMINOPHEN
     Indication: PAIN
  4. HUMIRA [Suspect]
     Active Substance: ADALIMUMAB
     Indication: RHEUMATOID ARTHRITIS
     Route: 058
     Dates: start: 20140625
  5. PREDNISONE. [Concomitant]
     Active Substance: PREDNISONE
     Indication: RHEUMATOID ARTHRITIS
  6. CODEINE [Concomitant]
     Active Substance: CODEINE
     Indication: PAIN
  7. VIMOVO [Concomitant]
     Active Substance: ESOMEPRAZOLE MAGNESIUM\NAPROXEN
     Indication: PAIN
  8. PREDNISONE. [Concomitant]
     Active Substance: PREDNISONE
  9. METHOTREXATE. [Concomitant]
     Active Substance: METHOTREXATE
     Indication: PRODUCT USED FOR UNKNOWN INDICATION

REACTIONS (13)
  - Knee arthroplasty [Not Recovered/Not Resolved]
  - Osteoarthritis [Unknown]
  - Arthralgia [Unknown]
  - Lower limb fracture [Recovering/Resolving]
  - Therapeutic response unexpected [Unknown]
  - Fall [Recovering/Resolving]
  - Dyspepsia [Not Recovered/Not Resolved]
  - Gait disturbance [Unknown]
  - Pre-existing condition improved [Unknown]
  - Muscle disorder [Unknown]
  - Muscular weakness [Unknown]
  - Adverse event [Unknown]
  - Pain [Unknown]

NARRATIVE: CASE EVENT DATE: 20151110
